FAERS Safety Report 7551133-2 (Version None)
Quarter: 2011Q2

REPORT INFORMATION
  Report Type: 
  Country: None (occurrence: None)
  Receive Date: 20110616
  Receipt Date: 20110609
  Transmission Date: 20111010
  Serious: Yes (Other)
  Sender: FDA-Public Use
  Company Number: SE-PFIZER INC-2011124558

PATIENT
  Sex: Male

DRUGS (5)
  1. SERTRALINE HYDROCHLORIDE [Suspect]
     Dosage: 100 MG, 1X/DAY
     Dates: start: 20100624
  2. NITRAZEPAM [Suspect]
     Dosage: 5 MG, 1X/DAY
     Dates: start: 20100831
  3. LYRICA [Suspect]
     Dosage: 150 MG, 3X/DAY
     Dates: start: 20100624
  4. OXAZEPAM [Suspect]
     Dosage: 25 MG, AS NEEDED
     Dates: start: 20100614
  5. ZOPICLONE [Suspect]
     Dosage: 15 MG, 1X/DAY

REACTIONS (1)
  - HOMICIDE [None]
